FAERS Safety Report 17982519 (Version 1)
Quarter: 2020Q3

REPORT INFORMATION
  Report Type: Spontaneous
  Country: US (occurrence: US)
  Receive Date: 20200702
  Receipt Date: 20200702
  Transmission Date: 20201103
  Serious: Yes (Hospitalization)
  Sender: FDA-Public Use
  Company Number: None

PATIENT
  Age: 16 Year
  Sex: Female

DRUGS (16)
  1. LITHIUM CARD [Concomitant]
     Dates: start: 20200619
  2. LATUDA [Concomitant]
     Active Substance: LURASIDONE HYDROCHLORIDE
     Dates: start: 20200701
  3. VITAMIN D3 [Concomitant]
     Active Substance: CHOLECALCIFEROL
     Dates: start: 20200525
  4. DULOXETINE. [Concomitant]
     Active Substance: DULOXETINE
     Dates: start: 20200313
  5. KETOCONAZOLE. [Concomitant]
     Active Substance: KETOCONAZOLE
     Dates: start: 20200618
  6. HUMIRA [Suspect]
     Active Substance: ADALIMUMAB
     Indication: PSORIASIS
     Route: 058
  7. FAMOTIDINE. [Concomitant]
     Active Substance: FAMOTIDINE
     Dates: start: 20200602
  8. NAPROXEN. [Concomitant]
     Active Substance: NAPROXEN
     Dates: start: 20200519
  9. METHYLPHENID [Concomitant]
     Active Substance: METHYLPHENIDATE
     Dates: start: 20200608
  10. ACETAMIN [Concomitant]
     Active Substance: ACETAMINOPHEN
     Dates: start: 20200602
  11. LANSOPRAZOLE. [Concomitant]
     Active Substance: LANSOPRAZOLE
     Dates: start: 20200517
  12. ENBREL [Suspect]
     Active Substance: ETANERCEPT
     Indication: PSORIASIS
     Route: 058
     Dates: start: 20200604
  13. SULFASALAZINE. [Concomitant]
     Active Substance: SULFASALAZINE
     Dates: start: 20200423
  14. CETIRIZINE [Concomitant]
     Active Substance: CETIRIZINE HYDROCHLORIDE
     Dates: start: 20191221
  15. FAMOTIDINE. [Concomitant]
     Active Substance: FAMOTIDINE
     Dates: start: 20200602
  16. LANSOPRAZOIE [Concomitant]
     Dates: start: 20200517

REACTIONS (1)
  - Hospitalisation [None]
